FAERS Safety Report 12436529 (Version 1)
Quarter: 2016Q2

REPORT INFORMATION
  Report Type: Spontaneous
  Country: AR (occurrence: AR)
  Receive Date: 20160606
  Receipt Date: 20160606
  Transmission Date: 20160815
  Serious: Yes (Death, Hospitalization)
  Sender: FDA-Public Use
  Company Number: AR-PFIZER INC-2016279537

PATIENT
  Age: 71 Year
  Sex: Female

DRUGS (1)
  1. IBRANCE [Suspect]
     Active Substance: PALBOCICLIB
     Indication: BREAST CANCER METASTATIC
     Dosage: UNK
     Dates: start: 20160411

REACTIONS (7)
  - Nausea [Unknown]
  - Pyrexia [Unknown]
  - Paralysis [Fatal]
  - Peripheral swelling [Unknown]
  - Loss of consciousness [Unknown]
  - Hypertension [Fatal]
  - Vomiting [Unknown]

NARRATIVE: CASE EVENT DATE: 20160517
